FAERS Safety Report 14081039 (Version 1)
Quarter: 2017Q4

REPORT INFORMATION
  Report Type: Spontaneous
  Country: CH (occurrence: CH)
  Receive Date: 20171012
  Receipt Date: 20171012
  Transmission Date: 20180321
  Serious: Yes (Life-Threatening, Hospitalization)
  Sender: FDA-Public Use
  Company Number: CH-PFIZER INC-2017437756

PATIENT
  Age: 88 Year
  Sex: Female
  Weight: 70 kg

DRUGS (12)
  1. ASPIRIN CARDIO [Suspect]
     Active Substance: ASPIRIN
     Dosage: 100 MG, UNK
     Route: 048
     Dates: end: 20170516
  2. DAFALGAN [Concomitant]
     Active Substance: ACETAMINOPHEN
     Dosage: 1 G, 4X/DAY (1-1-1-1 ), IN RESERVE
  3. PERENTEROL /00838001/ [Concomitant]
     Dosage: 1 DF, 1X/DAY (1-0-0-0)
     Route: 048
  4. ZOCOR [Concomitant]
     Active Substance: SIMVASTATIN
     Dosage: 20 MG, 1X/DAY (0-0-1-0)
     Route: 048
  5. UBRETID [Concomitant]
     Active Substance: DISTIGMINE BROMIDE
     Dosage: 5 MG, 1X/DAY (1-0-0-0)
     Route: 048
  6. ELTROXIN LF [Concomitant]
     Dosage: 0.1 MG, 1X/DAY (1-0-0-0)
     Route: 048
  7. FRAGMIN [Suspect]
     Active Substance: DALTEPARIN SODIUM
     Dosage: 5000 IU, 1X/DAY (0-0-1-0)
     Route: 058
     Dates: end: 20170516
  8. TIENAM [Suspect]
     Active Substance: CILASTATIN SODIUM\IMIPENEM
     Indication: UROSEPSIS
     Dosage: 1 DF (500MG CILASTIN, 500MG IMIPENEM), 3X/DAY (1-1-1-0)
     Route: 042
     Dates: start: 201705
  9. LISINOPRIL. [Concomitant]
     Active Substance: LISINOPRIL
     Dosage: 10 MG, 1X/DAY (1-0-0-0)
     Route: 048
  10. TOREM /01036501/ [Concomitant]
     Active Substance: TORSEMIDE
     Dosage: 5 MG, DOSAGE UNKNOWN
     Route: 048
  11. SYMBICORT [Concomitant]
     Active Substance: BUDESONIDE\FORMOTEROL FUMARATE DIHYDRATE
     Dosage: 1 DF (0.2 MG BUDESONIDE, 0.06 MG FORMOTEROL), 1X/DAY (1-0-0-0)
     Route: 055
  12. LOGIMAX [Concomitant]
     Active Substance: FELODIPINE\METOPROLOL SUCCINATE
     Dosage: 1 DF (5 MG FELODIPINE, 50 MG METOPROLOL), 1X/DAY (1-0-0-0)
     Route: 048

REACTIONS (1)
  - Subdural haematoma [Unknown]

NARRATIVE: CASE EVENT DATE: 20170516
